FAERS Safety Report 5431501-5 (Version None)
Quarter: 2007Q3

REPORT INFORMATION
  Report Type: 
  Country: None (occurrence: None)
  Receive Date: 20070830
  Receipt Date: 20070725
  Transmission Date: 20080115
  Serious: No
  Sender: FDA-Public Use
  Company Number: A0666330A

PATIENT
  Age: 50 Year
  Sex: Female

DRUGS (7)
  1. WELLBUTRIN XL [Suspect]
     Indication: DEPRESSION
     Dosage: 300MG PER DAY
     Route: 048
  2. IBUPROFEN [Concomitant]
  3. ASPIRIN [Concomitant]
  4. FISH OILS [Concomitant]
  5. VITAMIN E [Concomitant]
  6. MULTIPLE VITAMIN [Concomitant]
  7. ASCORBIC ACID [Concomitant]

REACTIONS (1)
  - DRUG SCREEN FALSE POSITIVE [None]
